FAERS Safety Report 5505003-1 (Version None)
Quarter: 2007Q4

REPORT INFORMATION
  Report Type: 
  Country: None (occurrence: None)
  Receive Date: 20071031
  Receipt Date: 20071031
  Transmission Date: 20080405
  Serious: Yes (Hospitalization)
  Sender: FDA-Public Use
  Company Number: None

PATIENT
  Sex: Female
  Weight: 56 kg

DRUGS (6)
  1. BEVACIZUMAB (GENETECH) [Suspect]
     Indication: GLIOBLASTOMA MULTIFORME
     Dosage: 10 MG/KG
     Dates: start: 20070413, end: 20071005
  2. ERLOTINIB (GENENTECH) [Suspect]
     Indication: GLIOBLASTOMA MULTIFORME
     Dosage: 200 MG/DAY
     Dates: start: 20070413, end: 20071005
  3. LEXAPRO [Concomitant]
  4. DECADRON [Concomitant]
  5. KEPPRA [Concomitant]
  6. LIPITOR [Concomitant]

REACTIONS (4)
  - HYDROCEPHALUS [None]
  - INTRACRANIAL HYPOTENSION [None]
  - MENINGITIS [None]
  - POST PROCEDURAL COMPLICATION [None]
